FAERS Safety Report 9794497 (Version 2)
Quarter: 2014Q1

REPORT INFORMATION
  Report Type: Spontaneous
  Country: US (occurrence: US)
  Receive Date: 20140102
  Receipt Date: 20140203
  Transmission Date: 20141002
  Serious: No
  Sender: FDA-Public Use
  Company Number: US-AMGEN-USASP2013091209

PATIENT
  Age: 62 Year
  Sex: Female
  Weight: 100.9 kg

DRUGS (8)
  1. ENBREL [Suspect]
     Indication: PSORIASIS
     Dosage: 50 MG, QWK
     Route: 058
     Dates: start: 20121227
  2. ACETAMINOPHEN [Concomitant]
     Indication: PAIN
     Dosage: 500 MG, AS NECESSARY 1-2 DAILY
     Route: 048
  3. GLYBURIDE [Concomitant]
     Indication: DIABETES MELLITUS
     Dosage: 500 MG, QD
     Route: 048
  4. METFORMIN [Concomitant]
     Indication: DIABETES MELLITUS
     Dosage: 500 MG, QD
     Route: 048
  5. LISINOPRIL [Concomitant]
     Indication: HYPERTENSION
     Dosage: 5 MG, QD
     Route: 048
  6. PRAVASTATIN [Concomitant]
     Indication: HYPERLIPIDAEMIA
     Dosage: 20 MG, QD
     Route: 048
  7. OLANZAPINE [Concomitant]
     Indication: BIPOLAR I DISORDER
     Dosage: 5 MG, QD
     Route: 048
  8. TRIAMCINOLONE ACETONIDE [Concomitant]
     Indication: PSORIASIS
     Dosage: 0.5 UNK, BID
     Dates: start: 20131226

REACTIONS (2)
  - Rhinorrhoea [Recovered/Resolved]
  - Cough [Recovered/Resolved]
